FAERS Safety Report 6406069-7 (Version None)
Quarter: 2009Q4

REPORT INFORMATION
  Report Type: 
  Country: None (occurrence: None)
  Receive Date: 20091019
  Receipt Date: 20091007
  Transmission Date: 20100525
  Serious: Yes (Hospitalization, Other)
  Sender: FDA-Public Use
  Company Number: CA-ELI_LILLY_AND_COMPANY-CA200910002831

PATIENT
  Age: 17 Year
  Sex: Male
  Weight: 106.58 kg

DRUGS (2)
  1. OLANZAPINE [Suspect]
     Dosage: 5 MG, DAILY (1/D)
  2. OLANZAPINE [Suspect]
     Dosage: 10 MG, DAILY (1/D)

REACTIONS (2)
  - HOSPITALISATION [None]
  - WEIGHT INCREASED [None]
